FAERS Safety Report 17750382 (Version 5)
Quarter: 2021Q2

REPORT INFORMATION
  Report Type: Spontaneous
  Country: US (occurrence: US)
  Receive Date: 20200506
  Receipt Date: 20210518
  Transmission Date: 20210716
  Serious: Yes (Other)
  Sender: FDA-Public Use
  Company Number: US-PFIZER INC-2020154846

PATIENT
  Age: 75 Year
  Sex: Female

DRUGS (1)
  1. LYRICA [Suspect]
     Active Substance: PREGABALIN
     Dosage: 125 MG, DAILY (50 MG IN THE MORNING AND 75 MG AT BEDTIME)
     Route: 048

REACTIONS (4)
  - Visual impairment [Unknown]
  - Impaired driving ability [Unknown]
  - Diabetes mellitus [Unknown]
  - Eye disorder [Unknown]
